FAERS Safety Report 8314516-9 (Version None)
Quarter: 2012Q2

REPORT INFORMATION
  Report Type: 
  Country: None (occurrence: None)
  Receive Date: 20120426
  Receipt Date: 20120413
  Transmission Date: 20120825
  Serious: Yes (Hospitalization)
  Sender: FDA-Public Use
  Company Number: US-ROCHE-1059610

PATIENT
  Sex: Female

DRUGS (3)
  1. COPEGUS [Suspect]
     Indication: HEPATITIS C
     Dosage: DIVIDED DOSES
     Route: 065
     Dates: start: 20120402
  2. TELAPREVIR [Suspect]
     Indication: HEPATITIS C
     Route: 048
     Dates: start: 20120402
  3. PEGASYS [Suspect]
     Indication: HEPATITIS C
     Route: 065
     Dates: start: 20120402

REACTIONS (6)
  - BLISTER [None]
  - RECTAL ULCER [None]
  - BLOOD POTASSIUM DECREASED [None]
  - STOMATITIS [None]
  - FEELING ABNORMAL [None]
  - PRURITUS GENERALISED [None]
